FAERS Safety Report 8509838-2 (Version None)
Quarter: 2012Q3

REPORT INFORMATION
  Report Type: 
  Country: None (occurrence: None)
  Receive Date: 20120713
  Receipt Date: 20120706
  Transmission Date: 20120928
  Serious: Yes (Other)
  Sender: FDA-Public Use
  Company Number: BR-ASTRAZENECA-2012SE46342

PATIENT
  Age: 56 Year
  Sex: Male
  Weight: 32.2 kg

DRUGS (3)
  1. METFORMIN HCL [Suspect]
     Indication: GLUCOSE TOLERANCE IMPAIRED
     Route: 048
     Dates: start: 20120625, end: 20120627
  2. CRESTOR [Suspect]
     Indication: HYPERCHOLESTEROLAEMIA
     Route: 048
     Dates: start: 20110426
  3. LOSARTAN POTASSIUM [Concomitant]
     Indication: HYPERTENSION
     Route: 048
     Dates: start: 20111021

REACTIONS (5)
  - GLUCOSE TOLERANCE IMPAIRED [None]
  - PROTEINURIA [None]
  - DYSGEUSIA [None]
  - HYPERTENSION [None]
  - HEADACHE [None]
